FAERS Safety Report 9520292 (Version 1)
Quarter: 2013Q3

REPORT INFORMATION
  Report Type: Spontaneous
  Country: US (occurrence: US)
  Receive Date: 20130912
  Receipt Date: 20130912
  Transmission Date: 20140515
  Serious: No
  Sender: FDA-Public Use
  Company Number: US-BAXTER-2013BAX034627

PATIENT
  Sex: 0

DRUGS (1)
  1. NEXTERONE_AMIODARONE, HYDROCHLORIDE 1.50 MG/ML_SOLUTION FOR INFUSION_B [Suspect]
     Indication: PRODUCT USED FOR UNKNOWN INDICATION
     Route: 042

REACTIONS (3)
  - Product colour issue [Unknown]
  - Poor quality drug administered [Unknown]
  - No adverse event [Recovered/Resolved]
